FAERS Safety Report 6311804-2 (Version None)
Quarter: 2009Q3

REPORT INFORMATION
  Report Type: 
  Country: None (occurrence: None)
  Receive Date: 20090813
  Receipt Date: 20090813
  Transmission Date: 20100115
  Serious: Yes (Life-Threatening)
  Sender: FDA-Public Use
  Company Number: None

PATIENT
  Sex: Female
  Weight: 54.4316 kg

DRUGS (2)
  1. CIPROFLOXACIN HYDROCHLORIDE [Suspect]
     Indication: KIDNEY INFECTION
     Dosage: (1) TABLET TWICE A DAY
     Dates: start: 20090427
  2. CIPROFLOXACIN HYDROCHLORIDE [Suspect]
     Indication: KIDNEY INFECTION
     Dosage: (1) TABLET TWICE A DAY
     Dates: start: 20090428

REACTIONS (8)
  - DIZZINESS [None]
  - IMPAIRED DRIVING ABILITY [None]
  - INSOMNIA [None]
  - NAUSEA [None]
  - TENDON PAIN [None]
  - VISION BLURRED [None]
  - VISUAL IMPAIRMENT [None]
  - VOMITING [None]
